FAERS Safety Report 9775321 (Version 1)
Quarter: 2013Q4

REPORT INFORMATION
  Report Type: Spontaneous
  Country: US (occurrence: None)
  Receive Date: 20131220
  Receipt Date: 20131220
  Transmission Date: 20140711
  Serious: No
  Sender: FDA-Public Use
  Company Number: ENDO PHARMACEUTICALS INC.-OPCR20130439

PATIENT
  Sex: Male

DRUGS (2)
  1. OPANA ER 20MG [Suspect]
     Indication: BACK PAIN
     Route: 048
     Dates: start: 20131122
  2. VALIUM [Concomitant]
     Indication: MUSCLE SPASMS
     Route: 048

REACTIONS (1)
  - Foreign body [Unknown]
